FAERS Safety Report 9684807 (Version 2)
Quarter: 2013Q4

REPORT INFORMATION
  Report Type: Report from Study
  Country: CA (occurrence: CA)
  Receive Date: 20131112
  Receipt Date: 20131112
  Transmission Date: 20140711
  Serious: Yes (Other)
  Sender: FDA-Public Use
  Company Number: PHHY2012CA004556

PATIENT
  Age: 59 Year
  Sex: Female

DRUGS (8)
  1. ACLASTA [Suspect]
     Indication: OSTEOPOROSIS
     Dosage: 5 MG/100ML, UNK
     Route: 042
     Dates: start: 20081107
  2. ACLASTA [Suspect]
     Dosage: 5 MG/100ML, UNK
     Route: 042
     Dates: start: 20091109
  3. ACLASTA [Suspect]
     Dosage: 5 MG/100ML, UNK
     Route: 042
     Dates: start: 20101108
  4. ACLASTA [Suspect]
     Dosage: 5 MG/100ML, UNK
     Route: 042
     Dates: start: 20111024
  5. ACLASTA [Suspect]
     Dosage: 5 MG/100ML, UNK
     Route: 042
     Dates: start: 20121017
  6. ACLASTA [Suspect]
     Dosage: 5 MG/100ML, UNK
     Route: 042
     Dates: start: 20131016
  7. CALCIUM [Concomitant]
     Dosage: 1 DF, BID
     Route: 048
  8. VITAMIN D [Concomitant]
     Dosage: 1000 U, PER DAY

REACTIONS (8)
  - Tooth loss [Unknown]
  - Crystal arthropathy [Unknown]
  - Arthralgia [Recovered/Resolved]
  - Pain in extremity [Recovered/Resolved]
  - Joint swelling [Recovered/Resolved]
  - Local swelling [Recovered/Resolved]
  - Blood calcium decreased [Unknown]
  - Influenza [Unknown]
